FAERS Safety Report 9030593 (Version 2)
Quarter: 2013Q1

REPORT INFORMATION
  Report Type: Spontaneous
  Country: FR (occurrence: FR)
  Receive Date: 20130123
  Receipt Date: 20130227
  Transmission Date: 20140127
  Serious: Yes (Hospitalization, Other)
  Sender: FDA-Public Use
  Company Number: FR-009507513-1301FRA007937

PATIENT
  Age: 44 Year
  Sex: Female

DRUGS (12)
  1. ISENTRESS [Suspect]
     Indication: HIV INFECTION
     Dosage: 400 MG, BID
     Route: 048
     Dates: start: 20121109, end: 20121205
  2. ISENTRESS [Suspect]
     Dosage: 400 MG, BID
     Route: 048
     Dates: start: 20121207, end: 20121219
  3. TRUVADA [Suspect]
     Indication: HIV INFECTION
     Dosage: 1 DF, QD
     Route: 048
     Dates: start: 20121109, end: 20121219
  4. WELLVONE [Suspect]
     Dosage: 750 MG, BID
     Route: 048
     Dates: end: 20121219
  5. RIMIFON [Suspect]
     Dosage: 200 MG, QD
     Route: 048
     Dates: end: 20121219
  6. LYRICA [Suspect]
     Dosage: 50 MG, QD
     Route: 048
     Dates: end: 20121219
  7. FLUCONAZOLE [Suspect]
     Indication: CRYPTOCOCCOSIS
     Dosage: 400 MG, QD
     Route: 048
     Dates: end: 20121219
  8. ANSATIPINE [Suspect]
     Dosage: 450 MG, QD
     Route: 048
     Dates: end: 20121219
  9. VITAMINS (UNSPECIFIED) [Concomitant]
     Dosage: UNK
     Route: 048
  10. INTELENCE [Concomitant]
     Dosage: UNK
     Route: 048
     Dates: start: 20121205, end: 20121207
  11. NORVIR [Concomitant]
  12. PREZISTA [Concomitant]

REACTIONS (7)
  - Pruritus [Recovered/Resolved]
  - Drug reaction with eosinophilia and systemic symptoms [Recovered/Resolved]
  - Vomiting [Recovered/Resolved]
  - Erythema [Recovered/Resolved]
  - Liver disorder [Recovered/Resolved]
  - Eosinophilia [Recovered/Resolved]
  - Agranulocytosis [Recovered/Resolved]
